FAERS Safety Report 18695336 (Version 2)
Quarter: 2021Q1

REPORT INFORMATION
  Report Type: Spontaneous
  Country: US (occurrence: US)
  Receive Date: 20210104
  Receipt Date: 20210203
  Transmission Date: 20210419
  Serious: Yes (Other)
  Sender: FDA-Public Use
  Company Number: US-PFIZER INC-2020490394

PATIENT
  Age: 84 Year
  Sex: Female

DRUGS (1)
  1. PREMARIN [Suspect]
     Active Substance: ESTROGENS, CONJUGATED
     Dosage: UNK (APPLY VAGINALLY THREE TIMES A WEEK)
     Route: 067

REACTIONS (11)
  - Cystitis [Unknown]
  - Urinary tract infection bacterial [Unknown]
  - Limb discomfort [Unknown]
  - Fear of death [Unknown]
  - Malaise [Unknown]
  - Gastrointestinal pain [Unknown]
  - Constipation [Unknown]
  - Dehydration [Unknown]
  - Off label use [Unknown]
  - Diarrhoea [Unknown]
  - Dry eye [Unknown]
